FAERS Safety Report 8196926-6 (Version None)
Quarter: 2012Q1

REPORT INFORMATION
  Report Type: 
  Country: None (occurrence: None)
  Receive Date: 20120307
  Receipt Date: 20120228
  Transmission Date: 20120608
  Serious: Yes (Other)
  Sender: FDA-Public Use
  Company Number: 2012SP011146

PATIENT
  Sex: Female

DRUGS (4)
  1. RIBAVIRIN [Suspect]
     Indication: HEPATITIS C
     Dosage: 800 MG;QD;UNK 400 MG;QD;UNK
     Dates: start: 20100402
  2. RIBAVIRIN [Suspect]
     Indication: HEPATITIS C
     Dosage: 800 MG;QD;UNK 400 MG;QD;UNK
     Dates: start: 20120228
  3. PEGASYS [Suspect]
     Indication: HEPATITIS C
     Dosage: ;UNK;UNK
     Dates: start: 20120228
  4. PEGASYS [Suspect]
     Indication: HEPATITIS C
     Dosage: ;UNK;UNK
     Dates: start: 20100402

REACTIONS (4)
  - ANAEMIA [None]
  - HEPATITIS C [None]
  - DISEASE RECURRENCE [None]
  - LOSS OF CONSCIOUSNESS [None]
